FAERS Safety Report 19087874 (Version 2)
Quarter: 2021Q2

REPORT INFORMATION
  Report Type: Report from Study
  Country: MX (occurrence: MX)
  Receive Date: 20210402
  Receipt Date: 20210520
  Transmission Date: 20210717
  Serious: Yes (Other)
  Sender: FDA-Public Use
  Company Number: MX-SA-2021SA099084

PATIENT
  Age: 36 Year
  Sex: Female
  Weight: 60 kg

DRUGS (1)
  1. AUBAGIO [Suspect]
     Active Substance: TERIFLUNOMIDE
     Indication: MULTIPLE SCLEROSIS
     Dosage: 14 MG, QD
     Route: 048
     Dates: start: 20150215, end: 20210325

REACTIONS (5)
  - Brain oedema [Recovered/Resolved]
  - Asthenia [Recovered/Resolved]
  - Sensory loss [Recovered/Resolved]
  - Multiple sclerosis relapse [Unknown]
  - Drug resistance [Unknown]

NARRATIVE: CASE EVENT DATE: 20210125
